FAERS Safety Report 7800630-0 (Version None)
Quarter: 2011Q4

REPORT INFORMATION
  Report Type: 
  Country: None (occurrence: None)
  Receive Date: 20111006
  Receipt Date: 20110921
  Transmission Date: 20120403
  Serious: Yes (Death, Hospitalization)
  Sender: FDA-Public Use
  Company Number: CA-ROCHE-779972

PATIENT
  Sex: Male
  Weight: 69.462 kg

DRUGS (5)
  1. COLACE [Concomitant]
  2. PANTOPRAZOLE SODIUM [Concomitant]
  3. AVASTIN [Suspect]
     Indication: GLIOBLASTOMA
     Dosage: FORM: INFUSION
     Route: 042
  4. LOVENOX [Concomitant]
  5. DECADRON [Concomitant]

REACTIONS (2)
  - EPILEPSY [None]
  - DEATH [None]
